FAERS Safety Report 24762314 (Version 1)
Quarter: 2024Q4

REPORT INFORMATION
  Report Type: Spontaneous
  Country: DE (occurrence: DE)
  Receive Date: 20241221
  Receipt Date: 20241221
  Transmission Date: 20250115
  Serious: Yes (Other)
  Sender: AUROBINDO
  Company Number: DE-009507513-2412DEU001086

PATIENT
  Age: 41 Year
  Sex: Female

DRUGS (3)
  1. CARBOPLATIN [Suspect]
     Active Substance: CARBOPLATIN
     Indication: Triple negative breast cancer
     Dosage: UNK (DOSE 1.5 UNIT NOT REPORTED)
     Route: 065
     Dates: start: 20231109
  2. PACLITAXEL [Suspect]
     Active Substance: PACLITAXEL
     Indication: Triple negative breast cancer
     Dosage: UNK (DOSE 80 UNIT NOT REPORTED)
     Route: 065
     Dates: start: 20231109
  3. KEYTRUDA [Suspect]
     Active Substance: PEMBROLIZUMAB
     Indication: Triple negative breast cancer
     Dosage: 200 MILLIGRAM (200 MILLIGRAM, Q3W)
     Route: 065
     Dates: start: 20231109, end: 20240508

REACTIONS (3)
  - Autoimmune pancreatitis [Unknown]
  - Autoimmune colitis [Unknown]
  - Radiotherapy [Unknown]

NARRATIVE: CASE EVENT DATE: 20240501
